FAERS Safety Report 9097420 (Version 2)
Quarter: 2013Q1

REPORT INFORMATION
  Report Type: Spontaneous
  Country: JP (occurrence: JP)
  Receive Date: 20130212
  Receipt Date: 20130305
  Transmission Date: 20140127
  Serious: Yes (Hospitalization)
  Sender: FDA-Public Use
  Company Number: JP-ELI_LILLY_AND_COMPANY-JP201210002915

PATIENT
  Age: 85 Year
  Sex: Female

DRUGS (3)
  1. FORTEO [Suspect]
     Dosage: UNK
     Route: 058
     Dates: start: 20120929
  2. FORTEO [Suspect]
     Route: 058
  3. FORTEO [Suspect]
     Dosage: UNK
     Route: 058

REACTIONS (4)
  - Kidney enlargement [Recovering/Resolving]
  - Pyrexia [Unknown]
  - Injection site bruising [Unknown]
  - Malaise [Not Recovered/Not Resolved]
